FAERS Safety Report 14368703 (Version 2)
Quarter: 2018Q1

REPORT INFORMATION
  Report Type: Spontaneous
  Country: US (occurrence: US)
  Receive Date: 20180109
  Receipt Date: 20180214
  Transmission Date: 20180509
  Serious: No
  Sender: FDA-Public Use
  Company Number: US-PFIZER INC-2017452810

PATIENT
  Age: 13 Year
  Sex: Male

DRUGS (1)
  1. GENOTROPIN [Suspect]
     Active Substance: SOMATROPIN
     Dosage: 1.8 MG, CYCLIC (6 DAYS EACH WEEK)
     Dates: start: 20171025, end: 20171220

REACTIONS (5)
  - Drug prescribing error [Unknown]
  - Cough [Unknown]
  - Headache [Unknown]
  - Abdominal discomfort [Unknown]
  - Sinus disorder [Unknown]

NARRATIVE: CASE EVENT DATE: 201712
